FAERS Safety Report 15687591 (Version 3)
Quarter: 2021Q2

REPORT INFORMATION
  Report Type: Spontaneous
  Country: FR (occurrence: FR)
  Receive Date: 20181205
  Receipt Date: 20210426
  Transmission Date: 20210716
  Serious: Yes (Hospitalization, Other)
  Sender: FDA-Public Use
  Company Number: FR-SUN PHARMACEUTICAL INDUSTRIES LTD-2018RR-192631

PATIENT
  Age: 17 Year
  Sex: Male
  Weight: 82 kg

DRUGS (11)
  1. TRIMEBUTINE [Suspect]
     Active Substance: TRIMEBUTINE
     Indication: PRODUCT USED FOR UNKNOWN INDICATION
     Dosage: 14000 MG, TOTAL ; IN TOTAL
     Route: 048
     Dates: start: 20180701, end: 20180701
  2. SERESTA 10 MG, COMPRIME [Suspect]
     Active Substance: OXAZEPAM
     Indication: PRODUCT USED FOR UNKNOWN INDICATION
     Dosage: 310 MG, TOTAL ; IN TOTAL
     Route: 048
     Dates: start: 20180701, end: 20180701
  3. AZITHROMYCINE [Suspect]
     Active Substance: AZITHROMYCIN
     Indication: PRODUCT USED FOR UNKNOWN INDICATION
     Dosage: 1500 MG, TOTAL ; IN TOTAL
     Route: 048
     Dates: start: 20180701, end: 20180701
  4. AUGMENTIN [Suspect]
     Active Substance: AMOXICILLIN\CLAVULANATE POTASSIUM
     Indication: PRODUCT USED FOR UNKNOWN INDICATION
     Dosage: 6 GRAM, DAILY
     Route: 048
     Dates: start: 20180701, end: 20180701
  5. ESCITALOPRAM [Suspect]
     Active Substance: ESCITALOPRAM OXALATE
     Indication: PRODUCT USED FOR UNKNOWN INDICATION
     Dosage: OVERDOSE: 140 MG, 1 DAY
     Route: 048
     Dates: start: 20180701, end: 20180701
  6. CEFPODOXIME [Suspect]
     Active Substance: CEFPODOXIME
     Indication: PRODUCT USED FOR UNKNOWN INDICATION
     Dosage: 2000 MG, TOTAL ; IN TOTAL
     Route: 048
     Dates: start: 20180701, end: 20180701
  7. PREDNISOLONE. [Suspect]
     Active Substance: PREDNISOLONE
     Indication: PRODUCT USED FOR UNKNOWN INDICATION
     Dosage: 200 MG, TOTAL ; IN TOTAL
     Route: 048
     Dates: start: 20180701, end: 20180701
  8. PARACETAMOL [Suspect]
     Active Substance: ACETAMINOPHEN
     Indication: PRODUCT USED FOR UNKNOWN INDICATION
     Dosage: IN TOTAL
     Route: 048
     Dates: start: 20180701, end: 20180701
  9. HEPATOUM, SOLUTION BUVABLE [Suspect]
     Active Substance: DIETARY SUPPLEMENT\HERBALS
     Indication: PRODUCT USED FOR UNKNOWN INDICATION
     Dosage: NON RENSEIGNEE ()
     Route: 048
     Dates: start: 20180701, end: 20180701
  10. ARESTAL 1 MG, COMPRIME [Suspect]
     Active Substance: LOPERAMIDE OXIDE
     Indication: PRODUCT USED FOR UNKNOWN INDICATION
     Dosage: 30 MG, TOTAL ; IN TOTAL
     Route: 048
     Dates: start: 20180701, end: 20180701
  11. INORIAL 20 MG, COMPRIME [Suspect]
     Active Substance: BILASTINE
     Indication: PRODUCT USED FOR UNKNOWN INDICATION
     Dosage: 120 MG, TOTAL ; IN TOTAL
     Route: 048
     Dates: start: 20180701, end: 20180701

REACTIONS (8)
  - Somnolence [Recovered/Resolved]
  - Intentional overdose [Unknown]
  - Malaise [Recovered/Resolved]
  - Toxicity to various agents [Recovered/Resolved]
  - Vomiting [Recovered/Resolved]
  - Mydriasis [Recovered/Resolved]
  - Product use issue [Unknown]
  - Suicide attempt [Unknown]

NARRATIVE: CASE EVENT DATE: 20180701
